FAERS Safety Report 18740169 (Version 1)
Quarter: 2021Q1

REPORT INFORMATION
  Report Type: Spontaneous
  Country: US (occurrence: US)
  Receive Date: 20210114
  Receipt Date: 20210114
  Transmission Date: 20210419
  Serious: Yes (Hospitalization)
  Sender: FDA-Public Use
  Company Number: None

PATIENT
  Age: 50 Year
  Sex: Female

DRUGS (15)
  1. ACTEMRA [Suspect]
     Active Substance: TOCILIZUMAB
     Indication: RHEUMATOID ARTHRITIS
     Route: 058
     Dates: start: 20180109
  2. ATORVASTATIN [Concomitant]
     Active Substance: ATORVASTATIN
  3. CYMBALTO [Concomitant]
  4. DAILY MULTI [Concomitant]
  5. TOPIRAMATE. [Concomitant]
     Active Substance: TOPIRAMATE
  6. ALBUTEROL NEB [Concomitant]
     Active Substance: ALBUTEROL
  7. NARATRIPTAN [Concomitant]
     Active Substance: NARATRIPTAN HYDROCHLORIDE
  8. VITAMIN B12 [Concomitant]
     Active Substance: CYANOCOBALAMIN
  9. VITAMIN D3 [Concomitant]
     Active Substance: CHOLECALCIFEROL
  10. PREDNISONE. [Concomitant]
     Active Substance: PREDNISONE
  11. MELOXICAM. [Concomitant]
     Active Substance: MELOXICAM
  12. GABAPENTIN. [Concomitant]
     Active Substance: GABAPENTIN
  13. AMOXICILLIN. [Concomitant]
     Active Substance: AMOXICILLIN
  14. CYCLOBENZAPR [Concomitant]
     Active Substance: CYCLOBENZAPRINE
  15. FLUCONAZOLE. [Concomitant]
     Active Substance: FLUCONAZOLE

REACTIONS (2)
  - Neuropathy peripheral [None]
  - Sjogren^s syndrome [None]

NARRATIVE: CASE EVENT DATE: 20201102
